FAERS Safety Report 7823076-8 (Version None)
Quarter: 2011Q4

REPORT INFORMATION
  Report Type: 
  Country: None (occurrence: None)
  Receive Date: 20111018
  Receipt Date: 20100928
  Transmission Date: 20120403
  Serious: No
  Sender: FDA-Public Use
  Company Number: US-ASTRAZENECA-2010SE45928

PATIENT
  Age: 51 Year
  Sex: Female

DRUGS (2)
  1. ALBUTEROL RESCUE [Concomitant]
     Route: 055
  2. SYMBICORT [Suspect]
     Indication: ASTHMA
     Dosage: TOTAL DAILY DOSAGE: 160-4.5 MCG, BID.
     Route: 055
     Dates: start: 20090101

REACTIONS (3)
  - CHEST DISCOMFORT [None]
  - INCREASED UPPER AIRWAY SECRETION [None]
  - DYSPNOEA [None]
